FAERS Safety Report 4617520-7 (Version None)
Quarter: 2005Q1

REPORT INFORMATION
  Report Type: 
  Country: None (occurrence: None)
  Receive Date: 20050324
  Receipt Date: 20041105
  Transmission Date: 20050727
  Serious: Yes (Death, Hospitalization, Other)
  Sender: FDA-Public Use
  Company Number: US-AMGEN-US099755

PATIENT
  Sex: Male

DRUGS (4)
  1. ENBREL [Suspect]
     Indication: PSORIASIS
     Dates: start: 20030101
  2. SORIATANE [Suspect]
     Dates: start: 20020710, end: 20030424
  3. DOVONEX [Concomitant]
  4. PREDNISONE [Concomitant]

REACTIONS (3)
  - APLASTIC ANAEMIA [None]
  - BLOOD TRIGLYCERIDES INCREASED [None]
  - MEMORY IMPAIRMENT [None]
